FAERS Safety Report 13802541 (Version 1)
Quarter: 2017Q3

REPORT INFORMATION
  Report Type: Spontaneous
  Country: PT (occurrence: PT)
  Receive Date: 20170728
  Receipt Date: 20170728
  Transmission Date: 20171127
  Serious: Yes (Other)
  Sender: FDA-Public Use
  Company Number: PT-WEST-WARD PHARMACEUTICALS CORP.-PT-H14001-17-02715

PATIENT
  Sex: Female

DRUGS (2)
  1. CEFOXITINA HIKMA [Suspect]
     Active Substance: CEFOXITIN SODIUM
     Indication: ANTIBIOTIC PROPHYLAXIS
     Route: 065
  2. CEFOXITINA HIKMA [Suspect]
     Active Substance: CEFOXITIN SODIUM
     Route: 065

REACTIONS (3)
  - Chest discomfort [Unknown]
  - Malaise [Unknown]
  - Administration site pain [Unknown]
